FAERS Safety Report 4574499-4 (Version None)
Quarter: 2005Q1

REPORT INFORMATION
  Report Type: 
  Country: None (occurrence: None)
  Receive Date: 20050204
  Receipt Date: 20050121
  Transmission Date: 20050727
  Serious: Yes (Other)
  Sender: FDA-Public Use
  Company Number: 2005018206

PATIENT
  Age: 77 Year
  Sex: Male
  Weight: 99.7913 kg

DRUGS (6)
  1. CEREBYX [Suspect]
     Indication: CONVULSION
     Dosage: 600 MG (200 MG, 3 IN 1 D), INTRAVENOUS
     Route: 042
     Dates: start: 20041201
  2. METRONIDAZOLE [Concomitant]
  3. PIPERACILLIN [Concomitant]
  4. LEVOFLOXACIN [Concomitant]
  5. FLUCONAZOLE [Concomitant]
  6. HEPARIN [Concomitant]

REACTIONS (9)
  - CHOLECYSTECTOMY [None]
  - DEPRESSED LEVEL OF CONSCIOUSNESS [None]
  - GASTRIC DISORDER [None]
  - GASTROINTESTINAL INFECTION [None]
  - GASTROINTESTINAL NECROSIS [None]
  - PNEUMONIA [None]
  - PYREXIA [None]
  - SWELLING [None]
  - TRACHEOSTOMY [None]
